FAERS Safety Report 15419919 (Version 2)
Quarter: 2018Q4

REPORT INFORMATION
  Report Type: Report from Study
  Country: US (occurrence: US)
  Receive Date: 20180924
  Receipt Date: 20181220
  Transmission Date: 20190204
  Serious: No
  Sender: FDA-Public Use
  Company Number: US-ADAMAS PHARMA, LLC-2018ADA01205

PATIENT
  Sex: Female
  Weight: 55.33 kg

DRUGS (10)
  1. UNSPECIFIED LEVODOPA-BASED THERAPY [Concomitant]
  2. CARBIDOPA. [Concomitant]
     Active Substance: CARBIDOPA
  3. ALEVE [Concomitant]
     Active Substance: NAPROXEN SODIUM
  4. CALCIUM D [Concomitant]
     Active Substance: CALCIUM\VITAMIN D
  5. GOCOVRI [Suspect]
     Active Substance: AMANTADINE
     Dosage: 274 MG, 1X/DAY AT BEDTIME
     Route: 048
     Dates: start: 2018
  6. TYLENOL [Concomitant]
     Active Substance: ACETAMINOPHEN
  7. GOCOVRI [Suspect]
     Active Substance: AMANTADINE
     Indication: DYSKINESIA
     Dosage: 274 MG, 1X/DAY AT BEDTIME
     Dates: start: 20180227, end: 2018
  8. GOCOVRI [Suspect]
     Active Substance: AMANTADINE
     Dosage: 137 MG, 1X/DAY AT BEDTIME
     Route: 048
     Dates: start: 2018, end: 2018
  9. PRISTIQ EXTENDED-RELEASE [Concomitant]
     Active Substance: DESVENLAFAXINE SUCCINATE
  10. RIVASTIGMINE. [Concomitant]
     Active Substance: RIVASTIGMINE

REACTIONS (4)
  - Inappropriate schedule of product administration [Recovered/Resolved]
  - Intentional underdose [Not Recovered/Not Resolved]
  - Product dose omission [Recovered/Resolved]
  - Skin discolouration [Not Recovered/Not Resolved]

NARRATIVE: CASE EVENT DATE: 2018
